FAERS Safety Report 13787171 (Version 1)
Quarter: 2017Q3

REPORT INFORMATION
  Report Type: Spontaneous
  Country: US (occurrence: US)
  Receive Date: 20170725
  Receipt Date: 20170725
  Transmission Date: 20171127
  Serious: Yes (Life-Threatening, Hospitalization, Disabling, Other)
  Sender: FDA-Public Use
  Company Number: None

PATIENT
  Sex: Male
  Weight: 60.84 kg

DRUGS (9)
  1. TRAZADONE 150MG THEN FAMILY DOCTORS RAISE IT 300MG [Suspect]
     Active Substance: TRAZODONE HYDROCHLORIDE
     Indication: MENTAL DISORDER
     Dosage: 300  + 150 MG AT BEDTIME BY MOUTH
     Route: 048
     Dates: start: 20160404, end: 20161028
  2. BREO ELLIPTA [Suspect]
     Active Substance: FLUTICASONE FUROATE\VILANTEROL TRIFENATATE
  3. ASPIRIN. [Concomitant]
     Active Substance: ASPIRIN
  4. KOLPINS [Concomitant]
  5. BENADRYL [Concomitant]
     Active Substance: DIPHENHYDRAMINE HYDROCHLORIDE
  6. VEANSE [Concomitant]
  7. BENDLY [Concomitant]
  8. INVEGA [Concomitant]
     Active Substance: PALIPERIDONE
  9. TRAZADONE 150MG THEN FAMILY DOCTORS RAISE IT 300MG [Suspect]
     Active Substance: TRAZODONE HYDROCHLORIDE
     Indication: SLEEP DISORDER
     Dosage: 300  + 150 MG AT BEDTIME BY MOUTH
     Route: 048
     Dates: start: 20160404, end: 20161028

REACTIONS (2)
  - Suicidal ideation [None]
  - Legal problem [None]
